FAERS Safety Report 26105696 (Version 1)
Quarter: 2025Q4

REPORT INFORMATION
  Report Type: Spontaneous
  Country: US (occurrence: US)
  Receive Date: 20251201
  Receipt Date: 20251201
  Transmission Date: 20260117
  Serious: No
  Sender: NOVARTIS
  Company Number: US-002147023-NVSC2025US182063

PATIENT

DRUGS (1)
  1. COSENTYX [Suspect]
     Active Substance: SECUKINUMAB
     Indication: Product used for unknown indication
     Dosage: UNK, ONCE WEEKLY FOR 5 WEEKS (WEEKS 0, 1, 2, 3, AND 4),
     Route: 058

REACTIONS (6)
  - Accidental exposure to product [Unknown]
  - Device deployment issue [Unknown]
  - Device malfunction [Unknown]
  - Exposure via skin contact [Unknown]
  - Product leakage [Unknown]
  - Device delivery system issue [Unknown]

NARRATIVE: CASE EVENT DATE: 20250926
